FAERS Safety Report 10094130 (Version 1)
Quarter: 2014Q2

REPORT INFORMATION
  Report Type: Spontaneous
  Country: US (occurrence: US)
  Receive Date: 20140422
  Receipt Date: 20140422
  Transmission Date: 20141212
  Serious: No
  Sender: FDA-Public Use
  Company Number: US-009507513-1403USA012498

PATIENT
  Age: 54 Year
  Sex: Male

DRUGS (3)
  1. PEGINTRON [Suspect]
     Indication: HEPATITIS C
     Dosage: 0.5 ML, QW
     Route: 058
     Dates: start: 20140321
  2. REBETOL [Suspect]
     Indication: HEPATITIS C
     Dosage: 600 MG, BID
     Route: 048
     Dates: start: 20140321
  3. SOVALDI [Concomitant]
     Dosage: 400 MG, QD
     Route: 048

REACTIONS (8)
  - Influenza like illness [Unknown]
  - Pruritus [Unknown]
  - Hyperaesthesia [Unknown]
  - Skin disorder [Unknown]
  - Hyperhidrosis [Unknown]
  - Night sweats [Unknown]
  - Arthralgia [Unknown]
  - Myalgia [Unknown]
